FAERS Safety Report 7155926-5 (Version None)
Quarter: 2010Q4

REPORT INFORMATION
  Report Type: 
  Country: None (occurrence: None)
  Receive Date: 20101214
  Receipt Date: 20101201
  Transmission Date: 20110411
  Serious: Yes (Other)
  Sender: FDA-Public Use
  Company Number: BR-RANBAXY-2010R5-40020

PATIENT

DRUGS (2)
  1. ACYCLOVIR SODIUM [Suspect]
     Indication: HERPES ZOSTER
     Dosage: 400 MG, 2 TABLETS EVERY 5 TIMES PER DAY
     Route: 048
     Dates: start: 20101030
  2. PACO [Concomitant]
     Indication: PRODUCT USED FOR UNKNOWN INDICATION
     Dosage: UNK
     Route: 065

REACTIONS (8)
  - ASTHENIA [None]
  - DIZZINESS [None]
  - DYSPNOEA [None]
  - EPISTAXIS [None]
  - HEADACHE [None]
  - NAUSEA [None]
  - SWELLING [None]
  - VOMITING [None]
